FAERS Safety Report 8588449-7 (Version None)
Quarter: 2012Q3

REPORT INFORMATION
  Report Type: 
  Country: None (occurrence: None)
  Receive Date: 20120813
  Receipt Date: 20120613
  Transmission Date: 20120928
  Serious: No
  Sender: FDA-Public Use
  Company Number: US-009507513-2012SP030602

PATIENT

DRUGS (3)
  1. ZEGERID OTC [Suspect]
     Indication: DYSPEPSIA
     Dosage: 20 MG, ONCE
     Route: 048
     Dates: start: 20120514
  2. ZEGERID OTC [Suspect]
     Dosage: 20 MG, ONCE
     Route: 048
     Dates: start: 20120520
  3. METOPROLOL TARTRATE [Suspect]
     Indication: HEART RATE IRREGULAR
     Dosage: UNK UNK, UNKNOWN

REACTIONS (1)
  - HEART RATE INCREASED [None]
